FAERS Safety Report 15875173 (Version 1)
Quarter: 2019Q1

REPORT INFORMATION
  Report Type: Spontaneous
  Country: US (occurrence: US)
  Receive Date: 20190126
  Receipt Date: 20190126
  Transmission Date: 20190417
  Serious: No
  Sender: FDA-Public Use
  Company Number: US-ACORDA-ACO_154285_2018

PATIENT
  Age: 43 Year
  Sex: Female

DRUGS (1)
  1. AMPYRA [Suspect]
     Active Substance: DALFAMPRIDINE
     Indication: PRODUCT USED FOR UNKNOWN INDICATION
     Dosage: UNK
     Route: 065
     Dates: end: 20181129

REACTIONS (6)
  - Malaise [Unknown]
  - Headache [Unknown]
  - Micturition urgency [Unknown]
  - Cough [Not Recovered/Not Resolved]
  - Back pain [Unknown]
  - Dysuria [Unknown]

NARRATIVE: CASE EVENT DATE: 20181031
